FAERS Safety Report 24606722 (Version 1)
Quarter: 2024Q4

REPORT INFORMATION
  Report Type: Spontaneous
  Country: DE (occurrence: DE)
  Receive Date: 20241112
  Receipt Date: 20241112
  Transmission Date: 20250115
  Serious: Yes (Death)
  Sender: SANDOZ
  Company Number: DE-009507513-2411DEU000755

PATIENT
  Sex: Male
  Weight: 89.4 kg

DRUGS (15)
  1. CISPLATIN [Suspect]
     Active Substance: CISPLATIN
     Indication: Non-small cell lung cancer
     Dosage: 120.94 MG
     Route: 065
     Dates: start: 20240703, end: 20240703
  2. PEMETREXED [Suspect]
     Active Substance: PEMETREXED
     Indication: Non-small cell lung cancer
     Dosage: 806.25 MG
     Route: 065
     Dates: start: 20240703, end: 20240703
  3. PEMBROLIZUMAB [Suspect]
     Active Substance: PEMBROLIZUMAB
     Indication: Non-small cell lung cancer
     Dosage: 200 MILLIGRAM
     Route: 065
     Dates: start: 20240521, end: 20240703
  4. APREPITANT [Concomitant]
     Active Substance: APREPITANT
     Indication: Product used for unknown indication
     Dosage: 125 MILLIGRAM, CYCLICAL
     Route: 048
     Dates: start: 20240516, end: 20240705
  5. ACLIDINIUM BROMIDE\FORMOTEROL FUMARATE [Concomitant]
     Active Substance: ACLIDINIUM BROMIDE\FORMOTEROL FUMARATE
     Indication: Product used for unknown indication
     Dosage: 430?G/ 12?G, DOSE OF 430 ?G INHALATION 2 TIMES A DAY
     Route: 055
  6. DEXAMETHASONE [Concomitant]
     Active Substance: DEXAMETHASONE
     Dosage: 4 MILLIGRAM, QD, 4 MG/-8 MG JENAPHARM
     Route: 048
     Dates: start: 20240703, end: 20240703
  7. DEXAMETHASONE [Concomitant]
     Active Substance: DEXAMETHASONE
     Dosage: 4 MILLIGRAM, BID, 4 MG/-8 MG JENAPHARM
     Route: 048
     Dates: start: 20240702, end: 20240702
  8. DEXAMETHASONE [Concomitant]
     Active Substance: DEXAMETHASONE
     Dosage: 8 MILLIGRAM, QD, 4 MG/-8 MG JENAPHARM
     Route: 048
     Dates: start: 20240704, end: 20240705
  9. DEXAMETHASONE [Concomitant]
     Active Substance: DEXAMETHASONE
     Indication: Product used for unknown indication
     Dosage: 0,5 MG/-1,5 MG/-4 MG/-8 MG GALEN, DOSE OF 8 MG, IV, PER CYCLE
     Route: 042
     Dates: start: 20240516, end: 20240703
  10. GRANISETRON HYDROCHLORIDE [Concomitant]
     Active Substance: GRANISETRON HYDROCHLORIDE
     Indication: Product used for unknown indication
     Dosage: 1 MG/ML CONCENTRATE FOR THE PREPARATION OF AN INJECTION SOLUTION OR INFUSION SOLUTION, DOSE OF 1 MG,
     Route: 042
     Dates: start: 20240515, end: 20240703
  11. GRANISETRONE [Concomitant]
     Indication: Product used for unknown indication
     Dosage: 2 MILLIGRAM, CYCLICAL, 2 MG FILM-COATED TABLETS
     Route: 048
     Dates: start: 20240517, end: 20240705
  12. LASIX [Concomitant]
     Active Substance: FUROSEMIDE
     Indication: Product used for unknown indication
     Dosage: 40 MILLIGRAM, QD
     Route: 065
     Dates: start: 20240703, end: 20240703
  13. OMEPRAZOLE [Concomitant]
     Active Substance: OMEPRAZOLE
     Indication: Product used for unknown indication
     Dosage: 20 MILLIGRAM, QD
     Route: 048
     Dates: start: 20240702, end: 20240705
  14. PANTOPRAZOL BETA [Concomitant]
     Indication: Product used for unknown indication
     Dosage: 20 MG/-40 MG GASTRIC ACID-RESISTANT TABLETS, DOSE OF 40 MG ORALLY DAILY
     Route: 048
  15. ACETAMINOPHEN [Concomitant]
     Active Substance: ACETAMINOPHEN
     Indication: Product used for unknown indication
     Dosage: 500 MG TABLETS, DOSE OF 1000MG, IV, PER CYCLE
     Route: 042
     Dates: start: 20240516, end: 20240703

REACTIONS (1)
  - Death [Fatal]

NARRATIVE: CASE EVENT DATE: 20240701
